FAERS Safety Report 19380629 (Version 1)
Quarter: 2021Q2

REPORT INFORMATION
  Report Type: Report from Study
  Country: US (occurrence: US)
  Receive Date: 20210607
  Receipt Date: 20210607
  Transmission Date: 20210717
  Serious: Yes (Hospitalization)
  Sender: FDA-Public Use
  Company Number: US-INSMED, INC.-2021-08077-US

PATIENT

DRUGS (2)
  1. COVID VACCINE [Concomitant]
     Indication: IMMUNISATION
  2. ARIKAYCE [Suspect]
     Active Substance: AMIKACIN
     Indication: PRODUCT USED FOR UNKNOWN INDICATION
     Dosage: 590 MILLIGRAM, QD
     Route: 055

REACTIONS (3)
  - Product dose omission issue [Unknown]
  - Hospitalisation [Unknown]
  - Intentional dose omission [Unknown]
